FAERS Safety Report 7047304-4 (Version None)
Quarter: 2010Q4

REPORT INFORMATION
  Report Type: 
  Country: None (occurrence: None)
  Receive Date: 20101014
  Receipt Date: 20101014
  Transmission Date: 20110411
  Serious: Yes (Hospitalization)
  Sender: FDA-Public Use
  Company Number: None

PATIENT
  Sex: Male

DRUGS (9)
  1. RANIBIZUMAB 0.5 MG GENENTECH (UNRELATED PER SUB-I) [Suspect]
     Dosage: 0.05 ML Q4W IV7
     Route: 042
     Dates: start: 20091105
  2. RANIBIZUMAB 0.5 MG GENENTECH (UNRELATED PER SUB-I) [Suspect]
     Dosage: 0.05 ML Q4W IV7
     Route: 042
     Dates: start: 20091215
  3. RANIBIZUMAB 0.5 MG GENENTECH (UNRELATED PER SUB-I) [Suspect]
     Dosage: 0.05 ML Q4W IV7
     Route: 042
     Dates: start: 20100112
  4. RANIBIZUMAB 0.5 MG GENENTECH (UNRELATED PER SUB-I) [Suspect]
     Dosage: 0.05 ML Q4W IV7
     Route: 042
     Dates: start: 20100210
  5. RANIBIZUMAB 0.5 MG GENENTECH (UNRELATED PER SUB-I) [Suspect]
     Dosage: 0.05 ML Q4W IV7
     Route: 042
     Dates: start: 20100310
  6. RANIBIZUMAB 0.5 MG GENENTECH (UNRELATED PER SUB-I) [Suspect]
     Dosage: 0.05 ML Q4W IV7
     Route: 042
     Dates: start: 20100419
  7. RANIBIZUMAB 0.5 MG GENENTECH (UNRELATED PER SUB-I) [Suspect]
     Dosage: 0.05 ML Q4W IV7
     Route: 042
     Dates: start: 20100701
  8. RANIBIZUMAB 0.5 MG GENENTECH (UNRELATED PER SUB-I) [Suspect]
     Dosage: 0.05 ML Q4W IV7
     Route: 042
     Dates: start: 20100805
  9. RANIBIZUMAB 0.5 MG GENENTECH (UNRELATED PER SUB-I) [Suspect]
     Dosage: 0.05 ML Q4W IV7
     Route: 042
     Dates: start: 20100902

REACTIONS (1)
  - ASTHENIA [None]
